FAERS Safety Report 18360334 (Version 1)
Quarter: 2020Q4

REPORT INFORMATION
  Report Type: Spontaneous
  Country: US (occurrence: US)
  Receive Date: 20201008
  Receipt Date: 20201008
  Transmission Date: 20210114
  Serious: No
  Sender: FDA-Public Use
  Company Number: US-PFIZER INC-2020388484

PATIENT
  Age: 61 Year
  Sex: Male

DRUGS (1)
  1. PREGABALIN. [Suspect]
     Active Substance: PREGABALIN
     Indication: PAIN
     Dosage: 150 MG, 3X/DAY(TAKE 1 CAPSULE BY MOUTH 3 TIMES EVERY DAY FOR 30 DAYS/150MG TID (THREE TIMES A DAY)
     Route: 048

REACTIONS (1)
  - Drug ineffective [Unknown]
